FAERS Safety Report 8461738-2 (Version None)
Quarter: 2012Q2

REPORT INFORMATION
  Report Type: 
  Country: None (occurrence: None)
  Receive Date: 20120625
  Receipt Date: 20120613
  Transmission Date: 20120825
  Serious: Yes (Other)
  Sender: FDA-Public Use
  Company Number: JP-VERTEX PHARMACEUTICALS INC.-AE-2012-008340

PATIENT
  Age: 67 Year
  Sex: Female

DRUGS (8)
  1. REBETOL [Concomitant]
     Indication: HEPATITIS C
     Route: 048
     Dates: start: 20120314, end: 20120425
  2. REBETOL [Concomitant]
     Route: 048
     Dates: start: 20120426, end: 20120524
  3. PEGINTERFERON ALFA-2B [Concomitant]
     Route: 058
     Dates: start: 20120502, end: 20120517
  4. GASMOTIN [Concomitant]
     Route: 048
     Dates: start: 20120502, end: 20120530
  5. TELAVIC (TELAPREVIR) [Suspect]
     Indication: HEPATITIS C
     Route: 048
     Dates: start: 20120314, end: 20120517
  6. PEGINTERFERON ALFA-2B [Concomitant]
     Indication: HEPATITIS C
     Route: 051
     Dates: start: 20120314
  7. ALLOPURINOL [Concomitant]
     Route: 048
     Dates: start: 20120319
  8. PRIMPERAN TAB [Concomitant]
     Route: 048
     Dates: start: 20120326

REACTIONS (2)
  - DECREASED APPETITE [None]
  - WEIGHT DECREASED [None]
